FAERS Safety Report 7155773-4 (Version None)
Quarter: 2010Q4

REPORT INFORMATION
  Report Type: 
  Country: None (occurrence: None)
  Receive Date: 20101214
  Receipt Date: 20101206
  Transmission Date: 20110411
  Serious: Yes (Hospitalization)
  Sender: FDA-Public Use
  Company Number: US-US-EMD SERONO, INC.-7031023

PATIENT
  Sex: Female
  Weight: 122 kg

DRUGS (5)
  1. REBIF [Suspect]
     Indication: MULTIPLE SCLEROSIS
     Dates: start: 20030101, end: 20080101
  2. REBIF [Suspect]
     Dates: start: 20101116
  3. GLUCOVANCE [Concomitant]
     Indication: DIABETES MELLITUS
     Dates: end: 20080101
  4. BACLOFEN [Concomitant]
     Indication: MUSCLE SPASMS
  5. NORCO [Concomitant]
     Indication: PAIN

REACTIONS (2)
  - DIABETES MELLITUS INADEQUATE CONTROL [None]
  - MULTIPLE SCLEROSIS RELAPSE [None]
